FAERS Safety Report 8373210-9 (Version None)
Quarter: 2012Q2

REPORT INFORMATION
  Report Type: 
  Country: None (occurrence: None)
  Receive Date: 20120521
  Receipt Date: 20120508
  Transmission Date: 20120825
  Serious: Yes (Hospitalization)
  Sender: FDA-Public Use
  Company Number: IT-PFIZER INC-2012107851

PATIENT
  Age: 92 Year
  Sex: Female

DRUGS (5)
  1. ASPIRIN [Concomitant]
     Dosage: 100 MG, UNK
  2. VALSARTAN  AND HYDROCHLOROTHIAZIDE [Suspect]
     Indication: HYPERTENSION
     Dosage: 1 DOSAGE FORMS (160/25 MG)
     Route: 048
     Dates: start: 20110101, end: 20120331
  3. LYRICA [Concomitant]
     Dosage: 75 MG, UNK
  4. CIPROFLOXACIN HCL [Concomitant]
     Dosage: 500 MG, UNK
  5. PANTOPRAZOLE [Suspect]
     Indication: PROPHYLAXIS AGAINST GASTROINTESTINAL ULCER
     Dosage: 20 MG DAILY
     Route: 048
     Dates: start: 20110101

REACTIONS (1)
  - HYPONATRAEMIA [None]
